FAERS Safety Report 11397663 (Version 2)
Quarter: 2015Q3

REPORT INFORMATION
  Report Type: Report from Study
  Country: US (occurrence: US)
  Receive Date: 20150819
  Receipt Date: 20150821
  Transmission Date: 20151125
  Serious: Yes (Hospitalization)
  Sender: FDA-Public Use
  Company Number: US-ACTELION-A-US2010-37117

PATIENT
  Age: 57 Year
  Sex: Female
  Weight: 92.06 kg

DRUGS (4)
  1. TRACLEER [Suspect]
     Active Substance: BOSENTAN
     Dosage: 62.5 MG, BID
     Route: 048
     Dates: start: 20070322, end: 20070422
  2. COUMADIN [Concomitant]
     Active Substance: WARFARIN SODIUM
  3. TRACLEER [Suspect]
     Active Substance: BOSENTAN
     Indication: PULMONARY ARTERIAL HYPERTENSION
     Dosage: 125 MG, BID
     Route: 048
     Dates: start: 20070424
  4. REVATIO [Concomitant]
     Active Substance: SILDENAFIL CITRATE

REACTIONS (7)
  - Fall [Unknown]
  - Suture insertion [Unknown]
  - Loss of consciousness [Unknown]
  - Syncope [Recovered/Resolved]
  - Rib fracture [Unknown]
  - Syncope [Unknown]
  - Laceration [Unknown]

NARRATIVE: CASE EVENT DATE: 201006
